FAERS Safety Report 8469804-2 (Version None)
Quarter: 2012Q2

REPORT INFORMATION
  Report Type: 
  Country: None (occurrence: None)
  Receive Date: 20120626
  Receipt Date: 20120622
  Transmission Date: 20120825
  Serious: Yes (Hospitalization, Disabling)
  Sender: FDA-Public Use
  Company Number: US-MERCK-1203USA03318

PATIENT
  Age: 60 Year
  Sex: Female

DRUGS (7)
  1. FOSAMAX [Suspect]
     Indication: OSTEOPENIA
     Route: 048
     Dates: start: 19960701, end: 20080601
  2. FOSAMAX [Suspect]
     Route: 048
     Dates: end: 20080101
  3. FOSAMAX [Suspect]
     Route: 048
     Dates: start: 20080601, end: 20081201
  4. FOSAMAX [Suspect]
     Route: 048
     Dates: end: 20080101
  5. MULTI-VITAMINS [Concomitant]
     Route: 048
  6. FOSAMAX [Suspect]
     Indication: OSTEOPOROSIS PROPHYLAXIS
     Route: 048
     Dates: start: 19960701, end: 20080601
  7. CALCIUM (UNSPECIFIED) AND VITAMIN D (UNSPECIFIED) [Concomitant]
     Route: 065

REACTIONS (17)
  - LOW TURNOVER OSTEOPATHY [None]
  - STRESS FRACTURE [None]
  - LIVER FUNCTION TEST ABNORMAL [None]
  - TONSILLITIS [None]
  - FEMUR FRACTURE [None]
  - OSTEOPOROSIS [None]
  - ARTHROPATHY [None]
  - VITAMIN D DEFICIENCY [None]
  - FUNCTIONAL GASTROINTESTINAL DISORDER [None]
  - PHARYNGITIS STREPTOCOCCAL [None]
  - OSTEOARTHRITIS [None]
  - HYPERLIPIDAEMIA [None]
  - ANAEMIA POSTOPERATIVE [None]
  - SPONDYLOLISTHESIS [None]
  - GASTROOESOPHAGEAL REFLUX DISEASE [None]
  - INTERVERTEBRAL DISC DEGENERATION [None]
  - HYPERSENSITIVITY [None]
